FAERS Safety Report 25145089 (Version 1)
Quarter: 2025Q2

REPORT INFORMATION
  Report Type: Spontaneous
  Country: US (occurrence: None)
  Receive Date: 20250401
  Receipt Date: 20250401
  Transmission Date: 20250717
  Serious: Yes (Other)
  Sender: FDA-CTU
  Company Number: None

PATIENT
  Age: 62 Year
  Sex: Female

DRUGS (5)
  1. EVENITY [Suspect]
     Active Substance: ROMOSOZUMAB-AQQG
     Indication: Osteoporosis
     Dates: start: 20250117
  2. VITAMIN D [Concomitant]
     Active Substance: VITAMIN D NOS
  3. Osteo-Stim [Concomitant]
  4. Osteo-Sustain [Concomitant]
  5. Magnesium/Calcium [Concomitant]

REACTIONS (2)
  - Migraine with aura [None]
  - Vision blurred [None]

NARRATIVE: CASE EVENT DATE: 20250324
